FAERS Safety Report 21216634 (Version 1)
Quarter: 2022Q3

REPORT INFORMATION
  Report Type: Spontaneous
  Country: US (occurrence: None)
  Receive Date: 20220816
  Receipt Date: 20220816
  Transmission Date: 20221027
  Serious: No
  Sender: FDA-Public Use
  Company Number: US-ROCHE-3072222

PATIENT
  Sex: Female
  Weight: 54.1 kg

DRUGS (2)
  1. PHESGO [Suspect]
     Active Substance: HYALURONIDASE-ZZXF\PERTUZUMAB\TRASTUZUMAB
     Indication: Invasive ductal breast carcinoma
     Dosage: STANDARD LOADING DOSE
     Route: 058
     Dates: start: 20220331
  2. DICLOFENAC [Concomitant]
     Active Substance: DICLOFENAC
     Dosage: AFTER MEALS
     Route: 048

REACTIONS (1)
  - Pain in extremity [Not Recovered/Not Resolved]
